FAERS Safety Report 20591619 (Version 2)
Quarter: 2022Q1

REPORT INFORMATION
  Report Type: Report from Study
  Country: FR (occurrence: FR)
  Receive Date: 20220314
  Receipt Date: 20220329
  Transmission Date: 20220423
  Serious: Yes (Other)
  Sender: FDA-Public Use
  Company Number: FR-GILEAD-2022-0564562

PATIENT
  Sex: Female
  Weight: 54 kg

DRUGS (12)
  1. SACITUZUMAB GOVITECAN [Suspect]
     Active Substance: SACITUZUMAB GOVITECAN
     Indication: Triple negative breast cancer
     Dosage: 10 MG/KG DAY 1
     Route: 042
     Dates: start: 20211229
  2. SACITUZUMAB GOVITECAN [Suspect]
     Active Substance: SACITUZUMAB GOVITECAN
     Dosage: 10 MG/KG DAY 8
     Route: 042
     Dates: start: 20220104
  3. SACITUZUMAB GOVITECAN [Suspect]
     Active Substance: SACITUZUMAB GOVITECAN
     Dosage: 7.5 MG
     Route: 042
     Dates: start: 20220119, end: 20220119
  4. CARBOPLATIN [Concomitant]
     Active Substance: CARBOPLATIN
  5. ETOPOSIDE [Concomitant]
     Active Substance: ETOPOSIDE
  6. EPIRUBICIN [Concomitant]
     Active Substance: EPIRUBICIN
  7. CYCLOPHOSPHAMIDE [Concomitant]
     Active Substance: CYCLOPHOSPHAMIDE
  8. CAPECITABINE [Concomitant]
     Active Substance: CAPECITABINE
  9. PACLITAXEL [Concomitant]
     Active Substance: PACLITAXEL
  10. PREDNISOLONE [Concomitant]
     Active Substance: PREDNISOLONE
     Indication: CSF pressure
  11. ESOMEPRAZOLE [Concomitant]
     Active Substance: ESOMEPRAZOLE
     Indication: Prophylaxis
  12. DENOSUMAB [Concomitant]
     Active Substance: DENOSUMAB
     Indication: Metastases to bone

REACTIONS (2)
  - Disease progression [Unknown]
  - Thrombocytopenia [Not Recovered/Not Resolved]

NARRATIVE: CASE EVENT DATE: 20220104
